FAERS Safety Report 25705902 (Version 1)
Quarter: 2025Q3

REPORT INFORMATION
  Report Type: Spontaneous
  Country: US (occurrence: None)
  Receive Date: 20250819
  Receipt Date: 20250819
  Transmission Date: 20251021
  Serious: Yes (Death)
  Sender: FDA-CTU
  Company Number: None

PATIENT
  Age: 64 Year
  Sex: Male

DRUGS (2)
  1. RIVAROXABAN [Suspect]
     Active Substance: RIVAROXABAN
  2. RIVAROXABAN [Concomitant]
     Active Substance: RIVAROXABAN

REACTIONS (7)
  - Pericardial effusion [None]
  - Cardiac tamponade [None]
  - Pulseless electrical activity [None]
  - Multiple organ dysfunction syndrome [None]
  - Haemofiltration [None]
  - Brain injury [None]
  - Transfusion [None]

NARRATIVE: CASE EVENT DATE: 20241214
